FAERS Safety Report 24965261 (Version 1)
Quarter: 2025Q1

REPORT INFORMATION
  Report Type: Spontaneous
  Country: US (occurrence: US)
  Receive Date: 20250213
  Receipt Date: 20250213
  Transmission Date: 20250409
  Serious: No
  Sender: ROCHE
  Company Number: US-ROCHE-10000203427

PATIENT
  Sex: Female

DRUGS (27)
  1. PULMOZYME [Suspect]
     Active Substance: DORNASE ALFA
     Indication: Cystic fibrosis
     Route: 055
  2. ALBUTEROL SULFATE [Concomitant]
     Active Substance: ALBUTEROL SULFATE
  3. ALENDRONATE [Concomitant]
     Active Substance: ALENDRONATE SODIUM
  4. ALLOPURINOL [Concomitant]
     Active Substance: ALLOPURINOL
  5. AMLODIPINE [Concomitant]
     Active Substance: AMLODIPINE BESYLATE
  6. BENZONATATE [Concomitant]
     Active Substance: BENZONATATE
  7. BIOTIN [Concomitant]
     Active Substance: BIOTIN
  8. CALCIUM CARBONATE [Concomitant]
     Active Substance: CALCIUM CARBONATE
  9. DESLORATADINE\PSEUDOEPHEDRINE SULFATE [Concomitant]
     Active Substance: DESLORATADINE\PSEUDOEPHEDRINE SULFATE
  10. DULERA [Concomitant]
     Active Substance: FORMOTEROL FUMARATE DIHYDRATE\MOMETASONE FUROATE
  11. ELIDEL [Concomitant]
     Active Substance: PIMECROLIMUS
  12. ESBRIET [Concomitant]
     Active Substance: PIRFENIDONE
     Indication: Idiopathic pulmonary fibrosis
  13. FLONASE [Concomitant]
     Active Substance: FLUTICASONE PROPIONATE
  14. IBUPROFEN [Concomitant]
     Active Substance: IBUPROFEN
  15. IPRATROPIUM [Concomitant]
     Active Substance: IPRATROPIUM
  16. LASIX [Concomitant]
     Active Substance: FUROSEMIDE
  17. LEXAPRO [Concomitant]
     Active Substance: ESCITALOPRAM OXALATE
  18. LIVALO [Concomitant]
     Active Substance: PITAVASTATIN CALCIUM
  19. LOSARTAN POTASSIUM [Concomitant]
     Active Substance: LOSARTAN POTASSIUM
  20. MAGNESIUM [Concomitant]
     Active Substance: MAGNESIUM
  21. MONTELUKAST [Concomitant]
     Active Substance: MONTELUKAST
  22. POTASSIUM [Concomitant]
     Active Substance: POTASSIUM
  23. PRILOSEC [Concomitant]
     Active Substance: OMEPRAZOLE MAGNESIUM
  24. PYRIDIUM [Concomitant]
     Active Substance: PHENAZOPYRIDINE
  25. RESTASIS [Concomitant]
     Active Substance: CYCLOSPORINE
  26. SYNTHROID [Concomitant]
     Active Substance: LEVOTHYROXINE SODIUM
  27. ZETIA [Concomitant]
     Active Substance: EZETIMIBE

REACTIONS (1)
  - Illness [Unknown]
